FAERS Safety Report 17752806 (Version 1)
Quarter: 2020Q2

REPORT INFORMATION
  Report Type: Spontaneous
  Country: DE (occurrence: DE)
  Receive Date: 20200506
  Receipt Date: 20200506
  Transmission Date: 20200714
  Serious: Yes (Other)
  Sender: FDA-Public Use
  Company Number: DE-ANIPHARMA-2020-DE-000090

PATIENT
  Sex: Female

DRUGS (7)
  1. NIFEDIPIN ^VERLA^ [Suspect]
     Active Substance: NIFEDIPINE
     Dosage: DOSE TEXT: 20 MG/ML WITH UNKNOWN FREQUENCY / DOSE TEXT: UNK / DOSE TEXT: 20 MG/ML ONCE SINGLE IN
     Route: 065
     Dates: start: 20200311
  2. SORMODREN [Suspect]
     Active Substance: BORNAPRINE HYDROCHLORIDE
     Dosage: 4 MG UNK / DOSE TEXT: UNK UNK, QD
     Route: 065
     Dates: start: 20200411
  3. BISOPROLOL [Suspect]
     Active Substance: BISOPROLOL
     Dosage: 2.5 MG UNK / DOSE TEXT: 1 DOSAGE FORM DAILY
     Route: 048
  4. ATORVASTATIN [Suspect]
     Active Substance: ATORVASTATIN
     Dosage: 40 MG UNK / 40 MG DAILY
     Route: 065
     Dates: start: 20200411
  5. LIXIANA [Suspect]
     Active Substance: EDOXABAN TOSYLATE
     Dosage: 60 MG UNK / 60 MG DAILY
     Route: 065
     Dates: start: 20200411
  6. CANDESARTAN. [Suspect]
     Active Substance: CANDESARTAN
     Indication: PRODUCT USED FOR UNKNOWN INDICATION
     Dosage: 4 MG QD / 8 MG QD / DOSE TEXT: UNK UNK, QD
     Route: 048
  7. MULTAQ [Suspect]
     Active Substance: DRONEDARONE
     Dosage: 400 MG UNK / 400 MG DAILY
     Route: 065
     Dates: start: 20200411

REACTIONS (2)
  - Blood pressure systolic increased [Unknown]
  - Drug interaction [Unknown]
